FAERS Safety Report 19621071 (Version 1)
Quarter: 2021Q3

REPORT INFORMATION
  Report Type: Spontaneous
  Country: US (occurrence: US)
  Receive Date: 20210728
  Receipt Date: 20210728
  Transmission Date: 20211014
  Serious: Yes (Life-Threatening)
  Sender: FDA-Public Use
  Company Number: None

PATIENT
  Age: 54 Year
  Sex: Male
  Weight: 84 kg

DRUGS (2)
  1. JANSSEN COVID?19 VACCINE [Suspect]
     Active Substance: AD26.COV2.S
  2. BARICITINIB. [Suspect]
     Active Substance: BARICITINIB

REACTIONS (3)
  - Facial paralysis [None]
  - Cerebrovascular accident [None]
  - Agitation [None]

NARRATIVE: CASE EVENT DATE: 20210725
